FAERS Safety Report 4362371-4 (Version None)
Quarter: 2004Q2

REPORT INFORMATION
  Report Type: 
  Country: None (occurrence: None)
  Receive Date: 20040518
  Receipt Date: 20040507
  Transmission Date: 20050107
  Serious: Yes (Hospitalization, Other)
  Sender: FDA-Public Use
  Company Number: 2004031163

PATIENT
  Age: 77 Year
  Sex: Male
  Weight: 88.4514 kg

DRUGS (14)
  1. TIKOSYN [Suspect]
     Indication: ARRHYTHMIA
     Dosage: 750 MCG (375 MCG, 2 IN 1 D), ORAL
     Route: 048
     Dates: start: 20030722
  2. LEVOFLOXACIN [Suspect]
     Indication: ILL-DEFINED DISORDER
     Dosage: INTRAVENOUS
     Route: 042
     Dates: start: 20040401, end: 20040501
  3. LEVOFLOXACIN [Suspect]
     Indication: ILL-DEFINED DISORDER
     Dosage: ORAL
     Route: 048
     Dates: start: 20040501, end: 20040501
  4. POTASSIUM (POTASSIUM) [Concomitant]
  5. MAGNESIUM (MAGNESIUM) [Concomitant]
  6. FUROSEMIDE [Concomitant]
  7. IRBESARTAN (IRBESARTAN) [Concomitant]
  8. NITROGLYCERIN [Concomitant]
  9. WARFARIN SODIUM [Concomitant]
  10. PREDNISONE [Concomitant]
  11. ALL OTHER THERAPEUTIC PRODUCTS (ALL OTHER THERAPEUTIC PRODUCTS) [Concomitant]
  12. SALMETEROL XINAOATE (SALMETEROL XINAFOATE) [Concomitant]
  13. COBIVENT (IPRATROPIUM BROMIDE, SALBUTAMOL SULFATE) [Concomitant]
  14. MORACIZINE HYDROCHLORIDE (MORACIZINE HYDROCHLORIDE) [Concomitant]

REACTIONS (8)
  - ATRIAL FIBRILLATION [None]
  - BLADDER NEOPLASM [None]
  - DIARRHOEA [None]
  - DRUG INTERACTION [None]
  - EJECTION FRACTION DECREASED [None]
  - THROMBOSIS [None]
  - URETHRAL OBSTRUCTION [None]
  - VENTRICULAR TACHYCARDIA [None]
